FAERS Safety Report 11990073 (Version 1)
Quarter: 2016Q1

REPORT INFORMATION
  Report Type: Spontaneous
  Country: RU (occurrence: RU)
  Receive Date: 20160202
  Receipt Date: 20160202
  Transmission Date: 20160526
  Serious: Yes (Other)
  Sender: FDA-Public Use
  Company Number: PHHY2016RU012338

PATIENT
  Age: 63 Year
  Sex: Female

DRUGS (4)
  1. LEVODOPA+BENSERAZIDE [Suspect]
     Active Substance: BENSERAZIDE\LEVODOPA
     Dosage: 650 MG, QD
     Route: 065
  2. LEVODOPA+BENSERAZIDE [Suspect]
     Active Substance: BENSERAZIDE\LEVODOPA
     Dosage: 900 MG, QD
     Route: 065
  3. LEVODOPA+BENSERAZIDE [Suspect]
     Active Substance: BENSERAZIDE\LEVODOPA
     Indication: GAIT DISTURBANCE
     Dosage: 300 MG, QD
     Route: 065
  4. AMANTADINE [Suspect]
     Active Substance: AMANTADINE
     Indication: PARKINSON^S DISEASE
     Dosage: 300 MG, QD
     Route: 065

REACTIONS (1)
  - Dyskinesia [Recovering/Resolving]
